FAERS Safety Report 25213117 (Version 1)
Quarter: 2025Q2

REPORT INFORMATION
  Report Type: Report from Study
  Country: CA (occurrence: CA)
  Receive Date: 20250418
  Receipt Date: 20250418
  Transmission Date: 20250716
  Serious: Yes (Other)
  Sender: TEVA
  Company Number: CA-TEVA-VS-3323318

PATIENT
  Age: 40 Year
  Sex: Female

DRUGS (2)
  1. CEPHALEXIN [Suspect]
     Active Substance: CEPHALEXIN
     Indication: Tooth abscess
     Route: 065
  2. RINVOQ [Suspect]
     Active Substance: UPADACITINIB
     Indication: Crohn^s disease
     Dosage: DOSAGE FORM:TABLET (EXTENDED-RELEASE),THERAPY DURATION:185
     Route: 048

REACTIONS (5)
  - Crohn^s disease [Recovering/Resolving]
  - Tooth abscess [Recovering/Resolving]
  - Nausea [Recovering/Resolving]
  - Toothache [Recovering/Resolving]
  - Lymphadenopathy [Recovering/Resolving]
